FAERS Safety Report 7587636-4 (Version None)
Quarter: 2011Q3

REPORT INFORMATION
  Report Type: 
  Country: None (occurrence: None)
  Receive Date: 20110704
  Receipt Date: 20110627
  Transmission Date: 20111222
  Serious: Yes (Death, Hospitalization, Other)
  Sender: FDA-Public Use
  Company Number: PHHY2011IT50549

PATIENT
  Age: 24 Year
  Sex: Female

DRUGS (2)
  1. EXJADE [Suspect]
     Indication: CONGENITAL APLASTIC ANAEMIA
     Dosage: 15 MG/KG
     Route: 048
     Dates: start: 20110512
  2. EXJADE [Suspect]
     Indication: IRON OVERLOAD
     Dosage: 22 MG/KG/ DAY
     Route: 048

REACTIONS (19)
  - BONE MARROW FAILURE [None]
  - MULTI-ORGAN FAILURE [None]
  - DEATH [None]
  - SEPTIC SHOCK [None]
  - LEUKOPENIA [None]
  - RENAL FAILURE [None]
  - DIARRHOEA [None]
  - DEHYDRATION [None]
  - MALAISE [None]
  - ASTHENIA [None]
  - LUNG INFILTRATION [None]
  - ACUTE RESPIRATORY DISTRESS SYNDROME [None]
  - HEPATIC FUNCTION ABNORMAL [None]
  - PYREXIA [None]
  - NEUTROPENIA [None]
  - SEPSIS [None]
  - PANCYTOPENIA [None]
  - PULMONARY CONGESTION [None]
  - COAGULOPATHY [None]
